FAERS Safety Report 9722484 (Version 5)
Quarter: 2014Q2

REPORT INFORMATION
  Report Type: Spontaneous
  Country: CN (occurrence: CN)
  Receive Date: 20131202
  Receipt Date: 20140422
  Transmission Date: 20141212
  Serious: Yes (Other)
  Sender: FDA-Public Use
  Company Number: CN-MILLENNIUM PHARMACEUTICALS, INC.-2013JNJ000744

PATIENT
  Sex: 0

DRUGS (5)
  1. VELCADE [Suspect]
     Indication: PLASMA CELL MYELOMA
     Dosage: 3.5 MG, UNK
     Route: 042
     Dates: start: 20130518, end: 201311
  2. THALIDOMIDE [Concomitant]
  3. THYMOPEPTIDE                       /00741801/ [Concomitant]
  4. MULTIVITAMIN                       /00097801/ [Concomitant]
  5. DEXAMETHASONE [Concomitant]

REACTIONS (7)
  - Suspected counterfeit product [Unknown]
  - Medication error [Unknown]
  - Bone pain [Recovering/Resolving]
  - Drug effect decreased [Unknown]
  - Malaise [Recovering/Resolving]
  - Decreased appetite [Recovering/Resolving]
  - Face oedema [Recovering/Resolving]
